FAERS Safety Report 4798894-3 (Version None)
Quarter: 2005Q4

REPORT INFORMATION
  Report Type: 
  Country: None (occurrence: None)
  Receive Date: 20051014
  Receipt Date: 20051003
  Transmission Date: 20060501
  Serious: Yes (Other)
  Sender: FDA-Public Use
  Company Number: 2005GB01912

PATIENT
  Age: 55 Year
  Sex: Male

DRUGS (1)
  1. CRESTOR [Suspect]
     Route: 048

REACTIONS (4)
  - CORONARY ARTERY STENOSIS [None]
  - RHYTHM IDIOVENTRICULAR [None]
  - STENT OCCLUSION [None]
  - VENTRICULAR EXTRASYSTOLES [None]
